FAERS Safety Report 7031161-6 (Version None)
Quarter: 2010Q4

REPORT INFORMATION
  Report Type: 
  Country: None (occurrence: None)
  Receive Date: 20101006
  Receipt Date: 20100621
  Transmission Date: 20110411
  Serious: Yes (Hospitalization, Other)
  Sender: FDA-Public Use
  Company Number: GXKR2010NL11082

PATIENT
  Age: 66 Year
  Sex: Male

DRUGS (12)
  1. LOSARTAN (NGX) [Suspect]
     Dosage: 50 MG, QD
     Route: 048
  2. DICLOFENAC (NGX) [Suspect]
     Dosage: 75 MG, BID
     Route: 048
  3. METFORMINE HYDROCHLORIDE (NGX) [Suspect]
     Dosage: 500 MG, TID
     Route: 048
  4. GLICLAZIDE [Concomitant]
     Dosage: 80 MG, BID
  5. METOPROLOL TARTRATE [Concomitant]
     Dosage: 100 MG, QD
  6. OMEPRAZOLE [Concomitant]
     Dosage: 20 MG, QD
  7. ACETAMINOPHEN [Concomitant]
     Dosage: 1000 MG, QID
  8. METOCLOPRAMIDE [Concomitant]
     Dosage: 20 MG, TID AND IF NECESSARY
  9. ATORVASTATIN [Concomitant]
     Dosage: 40 MG, QD
  10. ENOXAPARIN SODIUM [Concomitant]
     Dosage: 40 MG, QD
  11. ALFUZOSIN [Concomitant]
     Dosage: 10 MG, QD
  12. HYDROXYZINE [Concomitant]
     Dosage: 25 MG, QD

REACTIONS (14)
  - ABDOMINAL PAIN [None]
  - ABDOMINAL SEPSIS [None]
  - BLADDER CATHETERISATION [None]
  - HYPOTENSION [None]
  - LACTIC ACIDOSIS [None]
  - OLIGURIA [None]
  - PYREXIA [None]
  - RENAL FAILURE ACUTE [None]
  - RENAL IMPAIRMENT [None]
  - RENAL NECROSIS [None]
  - RENAL PAIN [None]
  - SEPSIS [None]
  - SEPTIC SHOCK [None]
  - URINOMA [None]
